FAERS Safety Report 8771017 (Version 2)
Quarter: 2012Q4

REPORT INFORMATION
  Report Type: 
  Country: CA (occurrence: CA)
  Receive Date: 20120906
  Receipt Date: 20120927
  Transmission Date: 20130627
  Serious: Yes (Death, Hospitalization)
  Sender: FDA-Public Use
  Company Number: CA-B.I. PHARMACEUTICALS,INC./RIDGEFIELD-2012-CN-01807CN

PATIENT
  Age: 68 Year
  Sex: Female

DRUGS (3)
  1. PRADAX [Suspect]
     Indication: ATRIAL FIBRILLATION
     Dosage: 300 mg
     Dates: start: 201204, end: 201206
  2. PRADAX [Suspect]
     Dosage: 220 mg
     Dates: start: 201206, end: 20120802
  3. MEDICATION NOT FURTHER SPECIFIED [Concomitant]

REACTIONS (3)
  - Haemorrhagic stroke [Fatal]
  - Epistaxis [Unknown]
  - Septic shock [Unknown]
